FAERS Safety Report 25386016 (Version 1)
Quarter: 2025Q2

REPORT INFORMATION
  Report Type: Spontaneous
  Country: US (occurrence: None)
  Receive Date: 20250530
  Receipt Date: 20250530
  Transmission Date: 20250717
  Serious: Yes (Hospitalization)
  Sender: FDA-CTU
  Company Number: None

PATIENT
  Age: 59 Year
  Sex: Male
  Weight: 68.4 kg

DRUGS (2)
  1. LITHIUM [Suspect]
     Active Substance: LITHIUM
     Indication: Schizoaffective disorder bipolar type
     Dosage: FREQUENCY : TWICE A DAY;?
     Route: 048
  2. LITHIUM [Concomitant]
     Active Substance: LITHIUM
     Dates: end: 20250512

REACTIONS (7)
  - Vomiting [None]
  - Lethargy [None]
  - Asthenia [None]
  - Dehydration [None]
  - Antipsychotic drug level increased [None]
  - Gait disturbance [None]
  - Hypophagia [None]

NARRATIVE: CASE EVENT DATE: 20250512
